FAERS Safety Report 5049324-8 (Version None)
Quarter: 2006Q3

REPORT INFORMATION
  Report Type: 
  Country: None (occurrence: None)
  Receive Date: 20060712
  Receipt Date: 20060705
  Transmission Date: 20061208
  Serious: Yes (Hospitalization)
  Sender: FDA-Public Use
  Company Number: US-MERCK-0607USA00511

PATIENT
  Sex: Male

DRUGS (4)
  1. ZETIA [Suspect]
     Route: 048
     Dates: start: 20060401
  2. GLUCOPHAGE [Concomitant]
     Route: 048
  3. TOPROL-XL [Concomitant]
     Route: 048
     Dates: start: 20060201
  4. AMARYL [Concomitant]
     Route: 048

REACTIONS (2)
  - MOVEMENT DISORDER [None]
  - MUSCULAR WEAKNESS [None]
